FAERS Safety Report 7442755-8 (Version None)
Quarter: 2011Q2

REPORT INFORMATION
  Report Type: 
  Country: None (occurrence: None)
  Receive Date: 20110428
  Receipt Date: 20110418
  Transmission Date: 20111010
  Serious: Yes (Life-Threatening, Hospitalization, Other)
  Sender: FDA-Public Use
  Company Number: TR-SANOFI-AVENTIS-2010SA005430

PATIENT
  Age: 44 Year
  Sex: Female
  Weight: 116 kg

DRUGS (11)
  1. DIGOXIN [Concomitant]
     Indication: CARDIOMYOPATHY
     Dosage: 0.25/0.50 TABLET
     Route: 048
     Dates: start: 20080101
  2. DILATREND [Concomitant]
     Indication: CARDIOMYOPATHY
     Dosage: 1.25
     Route: 048
     Dates: start: 20050101
  3. ASPIRIN [Concomitant]
     Indication: CARDIOMYOPATHY
     Route: 048
     Dates: start: 20050101
  4. LANTUS [Suspect]
     Indication: TYPE 2 DIABETES MELLITUS
     Dosage: DOSE:10 UNIT(S)
     Route: 058
     Dates: start: 20091001
  5. SPIRONOLACTONE [Concomitant]
     Indication: CARDIOMYOPATHY
     Route: 048
     Dates: start: 20050101
  6. COUMADIN [Concomitant]
     Indication: CARDIOMYOPATHY
     Route: 048
     Dates: start: 20050101
  7. SSRI [Concomitant]
     Indication: DEPRESSION
     Dosage: 10
     Route: 048
     Dates: start: 20080101
  8. DODEX [Concomitant]
     Route: 030
  9. ATORVASTATIN [Concomitant]
     Indication: CARDIOMYOPATHY
     Route: 048
     Dates: start: 20050101
  10. FUROSEMID [Concomitant]
     Indication: CARDIOMYOPATHY
     Route: 048
     Dates: start: 20050101
  11. ESCITALOPRAM [Concomitant]
     Indication: DEPRESSION
     Route: 048
     Dates: start: 20080101

REACTIONS (2)
  - VIITH NERVE PARALYSIS [None]
  - TRANSIENT ISCHAEMIC ATTACK [None]
